FAERS Safety Report 7000716-7 (Version None)
Quarter: 2010Q3

REPORT INFORMATION
  Report Type: 
  Country: None (occurrence: None)
  Receive Date: 20100920
  Receipt Date: 20100331
  Transmission Date: 20110219
  Serious: No
  Sender: FDA-Public Use
  Company Number: US-ASTRAZENECA-2010SE14318

PATIENT
  Age: 36 Year
  Sex: Female
  Weight: 81.6 kg

DRUGS (1)
  1. SEROQUEL [Suspect]
     Route: 048

REACTIONS (4)
  - DRUG DOSE OMISSION [None]
  - FEELING ABNORMAL [None]
  - MOOD ALTERED [None]
  - MOOD SWINGS [None]
